FAERS Safety Report 6412473-3 (Version None)
Quarter: 2009Q4

REPORT INFORMATION
  Report Type: 
  Country: None (occurrence: None)
  Receive Date: 20091023
  Receipt Date: 20091014
  Transmission Date: 20100525
  Serious: Yes (Life-Threatening, Hospitalization)
  Sender: FDA-Public Use
  Company Number: JP-WYE-G04623209

PATIENT
  Sex: Female

DRUGS (4)
  1. LANSOPRAZOLE [Suspect]
     Indication: ABDOMINAL PAIN UPPER
     Route: 048
     Dates: start: 20090427, end: 20091005
  2. COVERSYL [Concomitant]
     Indication: HYPERTENSION
     Route: 048
     Dates: start: 20060123, end: 20091005
  3. NATRIX [Concomitant]
     Indication: HYPERTENSION
     Route: 048
     Dates: start: 20061026, end: 20091005
  4. ASPIRIN [Concomitant]
     Indication: CEREBRAL INFARCTION
     Route: 048
     Dates: start: 20060123, end: 20091005

REACTIONS (2)
  - GRANULOCYTE COUNT DECREASED [None]
  - HYPERTHERMIA [None]
